FAERS Safety Report 5206117-6 (Version None)
Quarter: 2007Q1

REPORT INFORMATION
  Report Type: 
  Country: None (occurrence: None)
  Receive Date: 20070111
  Receipt Date: 20070103
  Transmission Date: 20070707
  Serious: Yes (Other)
  Sender: FDA-Public Use
  Company Number: FR-BRISTOL-MYERS SQUIBB COMPANY-13589049

PATIENT
  Age: 49 Year
  Sex: Male

DRUGS (2)
  1. APROVEL TABS 150 MG [Suspect]
     Indication: HYPERTENSION
     Route: 048
     Dates: start: 20060601, end: 20061123
  2. NOVONORM [Suspect]
     Indication: DIABETES MELLITUS NON-INSULIN-DEPENDENT
     Route: 048
     Dates: start: 20060101, end: 20061123

REACTIONS (10)
  - ABDOMINAL PAIN UPPER [None]
  - ADENOMA BENIGN [None]
  - ALANINE AMINOTRANSFERASE INCREASED [None]
  - ANOREXIA [None]
  - ASPARTATE AMINOTRANSFERASE INCREASED [None]
  - CHOLELITHIASIS [None]
  - COLON ADENOMA [None]
  - GAMMA-GLUTAMYLTRANSFERASE INCREASED [None]
  - HIATUS HERNIA [None]
  - NAUSEA [None]
